FAERS Safety Report 6937768-6 (Version None)
Quarter: 2010Q3

REPORT INFORMATION
  Report Type: 
  Country: None (occurrence: None)
  Receive Date: 20100823
  Receipt Date: 20100820
  Transmission Date: 20110219
  Serious: Yes (Hospitalization)
  Sender: FDA-Public Use
  Company Number: US-BRISTOL-MYERS SQUIBB COMPANY-15242423

PATIENT
  Age: 7 Year
  Sex: Male

DRUGS (3)
  1. ETOPOSIDE [Suspect]
     Indication: HISTIOCYTOSIS HAEMATOPHAGIC
     Dosage: TOTAL DOSE: 4
  2. CYCLOSPORINE [Suspect]
  3. DEXAMETHASONE [Concomitant]

REACTIONS (2)
  - MYOCARDIAL INFARCTION [None]
  - RESPIRATORY FAILURE [None]
